FAERS Safety Report 7636898-3 (Version None)
Quarter: 2011Q3

REPORT INFORMATION
  Report Type: 
  Country: None (occurrence: None)
  Receive Date: 20110726
  Receipt Date: 20110624
  Transmission Date: 20111222
  Serious: Yes (Other)
  Sender: FDA-Public Use
  Company Number: US-BAXTER-2009BH015623

PATIENT
  Age: 56 Year
  Sex: Male
  Weight: 91 kg

DRUGS (30)
  1. HEPARIN SODIUM INJECTION [Suspect]
     Indication: VASCULAR GRAFT
     Route: 058
     Dates: start: 20071008, end: 20071021
  2. HEPARIN SODIUM INJECTION [Suspect]
     Route: 065
     Dates: start: 20071007, end: 20071007
  3. HEPARIN SODIUM INJECTION [Suspect]
     Route: 065
     Dates: start: 20071008, end: 20071008
  4. HEPARIN SODIUM INJECTION [Suspect]
     Route: 042
     Dates: start: 20071008, end: 20071021
  5. HEPARIN SODIUM INJECTION [Suspect]
     Route: 065
     Dates: start: 20071008, end: 20071008
  6. HEPARIN SODIUM INJECTION [Suspect]
     Route: 058
     Dates: start: 20071030, end: 20071030
  7. ASPIRIN [Concomitant]
     Indication: PRODUCT USED FOR UNKNOWN INDICATION
     Route: 065
  8. COLACE [Concomitant]
     Indication: PRODUCT USED FOR UNKNOWN INDICATION
     Route: 065
  9. HEPARIN SODIUM INJECTION [Suspect]
     Route: 058
     Dates: start: 20071007, end: 20071021
  10. HEPARIN SODIUM INJECTION [Suspect]
     Route: 065
     Dates: start: 20071007, end: 20071007
  11. HEPARIN SODIUM INJECTION [Suspect]
     Route: 065
     Dates: start: 20071008, end: 20071008
  12. LOVENOX [Concomitant]
     Indication: PRODUCT USED FOR UNKNOWN INDICATION
     Route: 058
  13. HEPARIN SODIUM INJECTION [Suspect]
     Route: 065
     Dates: start: 20071007, end: 20071007
  14. HEPARIN SODIUM INJECTION [Suspect]
     Route: 058
     Dates: start: 20071030, end: 20071030
  15. CRESTOR [Concomitant]
     Indication: PRODUCT USED FOR UNKNOWN INDICATION
     Route: 065
  16. ALLOPURINOL SODIUM [Concomitant]
     Indication: PRODUCT USED FOR UNKNOWN INDICATION
     Route: 065
  17. HEPARIN SODIUM INJECTION [Suspect]
     Route: 058
     Dates: start: 20071007, end: 20071021
  18. HEPARIN SODIUM 5,000 UNITS IN DEXTROSE 5% [Suspect]
     Indication: PRODUCT USED FOR UNKNOWN INDICATION
     Route: 065
  19. ALTACE [Concomitant]
     Indication: PRODUCT USED FOR UNKNOWN INDICATION
     Route: 065
  20. HEPARIN SODIUM INJECTION [Suspect]
     Indication: ANGIOPLASTY
     Route: 058
     Dates: start: 20071008, end: 20071021
  21. HEPARIN SODIUM INJECTION [Suspect]
     Route: 042
     Dates: start: 20071008, end: 20071021
  22. GLYBURIDE [Concomitant]
     Indication: PRODUCT USED FOR UNKNOWN INDICATION
     Route: 065
  23. HEPARIN SODIUM INJECTION [Suspect]
     Indication: CATHETERISATION CARDIAC
     Route: 058
     Dates: start: 20071008, end: 20071021
  24. HEPARIN SODIUM INJECTION [Suspect]
     Route: 042
     Dates: start: 20071008, end: 20071021
  25. HEPARIN SODIUM INJECTION [Suspect]
     Route: 058
     Dates: start: 20071030, end: 20071030
  26. GLIMEPIRIDE [Concomitant]
     Indication: PRODUCT USED FOR UNKNOWN INDICATION
     Route: 065
  27. HEPARIN SODIUM INJECTION [Suspect]
     Route: 058
     Dates: start: 20071007, end: 20071021
  28. HEPARIN SODIUM 1,000 UNITS AND SODIUM CHLORIDE 0.9% [Suspect]
     Indication: PRODUCT USED FOR UNKNOWN INDICATION
     Route: 042
     Dates: start: 20071030, end: 20071105
  29. CARVEDILOL [Concomitant]
     Indication: PRODUCT USED FOR UNKNOWN INDICATION
     Route: 065
  30. WARFARIN [Concomitant]
     Indication: PRODUCT USED FOR UNKNOWN INDICATION
     Route: 065

REACTIONS (4)
  - SUBARACHNOID HAEMORRHAGE [None]
  - CEREBRAL INFARCTION [None]
  - GAIT DISTURBANCE [None]
  - INFECTION [None]
